FAERS Safety Report 7096960-3 (Version None)
Quarter: 2010Q4

REPORT INFORMATION
  Report Type: 
  Country: None (occurrence: None)
  Receive Date: 20101111
  Receipt Date: 20101105
  Transmission Date: 20110411
  Serious: Yes (Death)
  Sender: FDA-Public Use
  Company Number: PHHY2010JP37817

PATIENT
  Sex: Male

DRUGS (5)
  1. ZOLEDRONATE T29581+ [Suspect]
     Indication: METASTASES TO BONE
     Dosage: 4 MG SINGLE DOSE
     Route: 041
     Dates: start: 20080122, end: 20080122
  2. MORPHINE HYDROCHLORIDE [Concomitant]
     Dosage: 20 MG
     Route: 054
     Dates: start: 20080207, end: 20080302
  3. DUROTEP [Concomitant]
     Dosage: 10 MG
     Route: 054
     Dates: start: 20080221, end: 20080301
  4. BETAMETHASONE [Concomitant]
     Dosage: 2 MG
     Route: 042
     Dates: start: 20080206, end: 20080302
  5. TAXOTERE [Concomitant]
     Dosage: UNK
     Route: 042
     Dates: start: 20070418, end: 20070919

REACTIONS (1)
  - MALIGNANT NEOPLASM PROGRESSION [None]
